FAERS Safety Report 9312861 (Version 5)
Quarter: 2013Q3

REPORT INFORMATION
  Report Type: Spontaneous
  Country: US (occurrence: US)
  Receive Date: 20130528
  Receipt Date: 20130828
  Transmission Date: 20140515
  Serious: Yes (Hospitalization)
  Sender: FDA-Public Use
  Company Number: US-BAXTER-2013BAX019504

PATIENT
  Age: 63 Year
  Sex: Male

DRUGS (4)
  1. DIANEAL LOW CALCIUM [Suspect]
     Indication: PERITONEAL DIALYSIS
     Route: 033
     Dates: start: 2009
  2. EXTRANEAL [Suspect]
     Indication: PERITONEAL DIALYSIS
     Route: 033
     Dates: start: 2009
  3. EXTRANEAL [Suspect]
     Route: 033
  4. LIDOCAINE [Suspect]
     Indication: PRODUCT USED FOR UNKNOWN INDICATION

REACTIONS (7)
  - Application site burn [Unknown]
  - Impaired healing [Recovered/Resolved]
  - Dehydration [Recovered/Resolved]
  - Hypophagia [Recovered/Resolved]
  - Wrong drug administered [Unknown]
  - Procedural pain [Recovered/Resolved]
  - Muscle spasms [Recovered/Resolved]
